FAERS Safety Report 9433949 (Version 2)
Quarter: 2013Q3

REPORT INFORMATION
  Report Type: Spontaneous
  Country: US (occurrence: US)
  Receive Date: 20130801
  Receipt Date: 20130816
  Transmission Date: 20140515
  Serious: Yes (Hospitalization, Other)
  Sender: FDA-Public Use
  Company Number: US-009507513-1307USA016304

PATIENT
  Age: 55 Year
  Sex: Female

DRUGS (3)
  1. PEGINTRON [Suspect]
     Indication: HEPATITIS C
     Dosage: REDIPEN
     Dates: start: 20130721, end: 20130721
  2. REBETOL [Suspect]
     Indication: HEPATITIS C
     Dosage: UNK
     Dates: start: 20130715, end: 20130721
  3. TELAPREVIR [Suspect]
     Indication: HEPATITIS C
     Dosage: UNK
     Dates: start: 20130715, end: 20130721

REACTIONS (14)
  - Aphagia [Unknown]
  - Vomiting [Unknown]
  - Asthenia [Unknown]
  - Feeling cold [Unknown]
  - Vomiting [Unknown]
  - Pyrexia [Unknown]
  - Headache [Unknown]
  - Influenza like illness [Unknown]
  - Constipation [Unknown]
  - Sensation of heaviness [Unknown]
  - Blood glucose increased [Unknown]
  - Dehydration [Unknown]
  - Vision blurred [Unknown]
  - Photophobia [Unknown]
